FAERS Safety Report 5237130-0 (Version None)
Quarter: 2007Q1

REPORT INFORMATION
  Report Type: 
  Country: None (occurrence: None)
  Receive Date: 20070213
  Receipt Date: 20070212
  Transmission Date: 20070707
  Serious: Yes (Other)
  Sender: FDA-Public Use
  Company Number: US-GLAXOSMITHKLINE-A0639008A

PATIENT
  Age: 69 Year
  Sex: Female

DRUGS (11)
  1. OS-CAL ULTRA 600 PLUS [Suspect]
     Dosage: 2CAPL PER DAY
     Route: 048
     Dates: start: 20060101
  2. AVANDIA [Concomitant]
     Dosage: 8MG SINGLE DOSE
  3. GLUCOTROL [Concomitant]
     Dosage: 10MG PER DAY
  4. SYNTHROID [Concomitant]
     Dosage: .11MG PER DAY
  5. NEXIUM [Concomitant]
     Dosage: 20MG PER DAY
  6. COUMADIN [Concomitant]
  7. ASPIRIN [Concomitant]
     Dosage: 81MG PER DAY
  8. COZAAR [Concomitant]
     Dosage: 50MG PER DAY
  9. ADALAT [Concomitant]
     Dosage: 30MG PER DAY
  10. MAXZIDE [Concomitant]
     Dosage: 25MG PER DAY
  11. NASACORT [Concomitant]

REACTIONS (2)
  - CONSTIPATION [None]
  - RECTAL HAEMORRHAGE [None]
